FAERS Safety Report 7593449-X (Version None)
Quarter: 2011Q3

REPORT INFORMATION
  Report Type: 
  Country: None (occurrence: None)
  Receive Date: 20110706
  Receipt Date: 20110630
  Transmission Date: 20111222
  Serious: Yes (Hospitalization, Other)
  Sender: FDA-Public Use
  Company Number: NO-MERCK-1107NOR00001

PATIENT
  Age: 53 Year
  Sex: Female

DRUGS (8)
  1. SALMETEROL XINAFOATE [Concomitant]
     Indication: ASTHMA
     Route: 055
  2. BECLOMETHASONE DIPROPIONATE [Concomitant]
     Indication: ASTHMA
     Route: 055
  3. RYE [Concomitant]
     Route: 048
  4. CLARINEX [Suspect]
     Indication: HYPERSENSITIVITY
     Route: 048
     Dates: end: 20110523
  5. SINGULAIR [Suspect]
     Indication: ASTHMA
     Route: 048
     Dates: end: 20110523
  6. IPRATROPIUM BROMIDE [Concomitant]
     Indication: ASTHMA
     Route: 055
  7. TRAMADOL HYDROCHLORIDE [Concomitant]
     Indication: PAIN
     Route: 048
     Dates: start: 20110520
  8. OXAZEPAM [Concomitant]
     Route: 048

REACTIONS (1)
  - HEPATITIS [None]
